FAERS Safety Report 7962818-8 (Version None)
Quarter: 2011Q4

REPORT INFORMATION
  Report Type: 
  Country: None (occurrence: None)
  Receive Date: 20111207
  Receipt Date: 20111124
  Transmission Date: 20120403
  Serious: Yes (Other)
  Sender: FDA-Public Use
  Company Number: CA-MYLANLABS-2011S1024720

PATIENT
  Age: 19 Year
  Sex: Female

DRUGS (9)
  1. METHYLPREDNISOLONE [Suspect]
     Indication: ANGIOEDEMA
     Dosage: 80MG EVERY 8 HOURS DURING 48-HOUR ADMISSION
     Route: 042
  2. METHYLPREDNISOLONE [Suspect]
     Dosage: 125MG EVERY 8 HOURS
     Route: 042
  3. HYDROXYCHLOROQUINE [Suspect]
     Indication: ANTINUCLEAR ANTIBODY POSITIVE
     Route: 065
  4. RANITIDINE [Concomitant]
     Indication: PROPHYLAXIS
     Route: 065
  5. EPINEPHRINE [Concomitant]
     Indication: ANGIOEDEMA
     Route: 030
  6. CETIRIZINE HCL [Concomitant]
     Indication: PROPHYLAXIS
     Route: 065
  7. FORMOTEROL W/BUDESONIDE [Concomitant]
     Indication: ASTHMA
     Route: 065
  8. MONTELUKAST SODIUM [Concomitant]
     Indication: ASTHMA
     Route: 065
  9. IMMUNE GLOBULIN NOS [Suspect]
     Route: 042

REACTIONS (1)
  - POSTERIOR REVERSIBLE ENCEPHALOPATHY SYNDROME [None]
